FAERS Safety Report 4561195-2 (Version None)
Quarter: 2005Q1

REPORT INFORMATION
  Report Type: 
  Country: None (occurrence: None)
  Receive Date: 20050121
  Receipt Date: 20050118
  Transmission Date: 20050727
  Serious: Yes (Other)
  Sender: FDA-Public Use
  Company Number: A-US2003-03272

PATIENT
  Age: 57 Year
  Sex: Female
  Weight: 52.6 kg

DRUGS (14)
  1. TRACLEER [Suspect]
     Indication: PULMONARY HYPERTENSION
     Dosage: SEE IMAGE, ORAL
     Route: 048
     Dates: start: 20020219, end: 20020305
  2. TRACLEER [Suspect]
     Indication: PULMONARY HYPERTENSION
     Dosage: SEE IMAGE, ORAL
     Route: 048
     Dates: start: 20020305, end: 20020319
  3. TRACLEER [Suspect]
     Indication: PULMONARY HYPERTENSION
     Dosage: SEE IMAGE, ORAL
     Route: 048
     Dates: start: 20030803, end: 20030902
  4. TRACLEER [Suspect]
     Indication: PULMONARY HYPERTENSION
     Dosage: SEE IMAGE, ORAL
     Route: 048
     Dates: start: 20020319
  5. URSODIOL (URSODEOXYCHOLIC ACID) [Concomitant]
  6. REMODULIN [Concomitant]
  7. MODURETIC 5-50 [Concomitant]
  8. K-DUR 10 [Concomitant]
  9. CITRUCEL (METHYLCELLULOSE) TABLET [Concomitant]
  10. AMBIEN [Concomitant]
  11. ULTRAM [Concomitant]
  12. PREDNISONE [Concomitant]
  13. SPIRONOLACTONE [Concomitant]
  14. ZOLOFT [Concomitant]

REACTIONS (7)
  - ALANINE AMINOTRANSFERASE INCREASED [None]
  - ASPARTATE AMINOTRANSFERASE INCREASED [None]
  - BLOOD ALKALINE PHOSPHATASE INCREASED [None]
  - BLOOD BILIRUBIN INCREASED [None]
  - HEPATIC CIRRHOSIS [None]
  - HEPATIC CONGESTION [None]
  - NAUSEA [None]
